FAERS Safety Report 4851981-3 (Version None)
Quarter: 2005Q4

REPORT INFORMATION
  Report Type: 
  Country: None (occurrence: None)
  Receive Date: 20051213
  Receipt Date: 20051205
  Transmission Date: 20060501
  Serious: Yes (Other)
  Sender: FDA-Public Use
  Company Number: 2005UW18307

PATIENT
  Age: 85 Year
  Sex: Female
  Weight: 75.7 kg

DRUGS (2)
  1. TOPROL-XL [Suspect]
     Indication: HEART RATE INCREASED
     Route: 048
  2. KLONOPIN [Concomitant]
     Indication: SLEEP DISORDER
     Route: 048

REACTIONS (1)
  - MYELODYSPLASTIC SYNDROME [None]
